FAERS Safety Report 7542783-8 (Version None)
Quarter: 2011Q2

REPORT INFORMATION
  Report Type: 
  Country: None (occurrence: None)
  Receive Date: 20110613
  Receipt Date: 20110609
  Transmission Date: 20111010
  Serious: Yes (Life-Threatening, Hospitalization)
  Sender: FDA-Public Use
  Company Number: Z0008616A

PATIENT
  Age: 76 Year
  Sex: Female
  Weight: 42.7 kg

DRUGS (1)
  1. ELTROMBOPAG [Suspect]
     Indication: THROMBOCYTOPENIA
     Route: 048
     Dates: start: 20110310

REACTIONS (1)
  - SUBCUTANEOUS HAEMATOMA [None]
